FAERS Safety Report 10148418 (Version 2)
Quarter: 2015Q4

REPORT INFORMATION
  Report Type: Report from Study
  Country: US (occurrence: US)
  Receive Date: 20140501
  Receipt Date: 20151019
  Transmission Date: 20160304
  Serious: No
  Sender: FDA-Public Use
  Company Number: US-AMGEN-USASP2014028954

PATIENT
  Age: 48 Year
  Sex: Female

DRUGS (2)
  1. ENBREL [Suspect]
     Active Substance: ETANERCEPT
     Indication: PSORIATIC ARTHROPATHY
     Dosage: 50 MG, QWK
     Route: 065
     Dates: start: 20090701
  2. ENBREL [Suspect]
     Active Substance: ETANERCEPT
     Dosage: UNK UNK, UNK
     Route: 065

REACTIONS (10)
  - Drug dose omission [Unknown]
  - Hypersensitivity [Recovered/Resolved]
  - Oropharyngeal pain [Unknown]
  - Nasopharyngitis [Unknown]
  - Injection site pain [Not Recovered/Not Resolved]
  - Cough [Recovered/Resolved]
  - Malaise [Unknown]
  - Respiratory tract congestion [Recovered/Resolved]
  - Liver disorder [Unknown]
  - Pyrexia [Not Recovered/Not Resolved]

NARRATIVE: CASE EVENT DATE: 201404
